FAERS Safety Report 21713021 (Version 3)
Quarter: 2023Q1

REPORT INFORMATION
  Report Type: Spontaneous
  Country: IT (occurrence: IT)
  Receive Date: 20221212
  Receipt Date: 20230203
  Transmission Date: 20230418
  Serious: Yes (Other)
  Sender: FDA-Public Use
  Company Number: IT-PFIZER INC-PV202200119476

PATIENT
  Age: 35 Year
  Sex: Female
  Weight: 70 kg

DRUGS (6)
  1. PAXLOVID [Suspect]
     Active Substance: NIRMATRELVIR\RITONAVIR
     Indication: COVID-19 treatment
     Dosage: [PF-07321332 300 MG]/[RITONAVIR 100 MG]; 2X/DAY
     Route: 048
     Dates: start: 20220711, end: 20220715
  2. ENOXAPARIN [Concomitant]
     Active Substance: ENOXAPARIN
     Indication: Thrombosis prophylaxis
     Dosage: 4000 IU, DAILY
     Route: 058
     Dates: start: 20220311, end: 20221218
  3. LEVOTHYROXINE [Concomitant]
     Active Substance: LEVOTHYROXINE
     Indication: Hypothyroidism
     Dosage: 125 UG, DAILY
     Route: 048
     Dates: start: 2013
  4. COLISTIMETHATE SODIUM [Concomitant]
     Active Substance: COLISTIMETHATE SODIUM
     Indication: Cystic fibrosis
     Dosage: 1000000 IU, DAILY
     Dates: start: 2010
  5. INSULINE GLULISINE [Concomitant]
     Indication: Type 1 diabetes mellitus
     Dosage: AT H 8:00, H 13:00 AT 8 P.M
     Route: 058
     Dates: start: 2017
  6. INSULIN GLARGINE [Concomitant]
     Active Substance: INSULIN GLARGINE
     Indication: Type 1 diabetes mellitus
     Dosage: 8IU AT H 10 PM
     Route: 058
     Dates: start: 2017

REACTIONS (4)
  - Maternal exposure during pregnancy [Unknown]
  - Respiratory failure [Unknown]
  - Cystic fibrosis [Unknown]
  - Condition aggravated [Unknown]
